FAERS Safety Report 7578510-8 (Version None)
Quarter: 2011Q2

REPORT INFORMATION
  Report Type: 
  Country: None (occurrence: None)
  Receive Date: 20110622
  Receipt Date: 20110616
  Transmission Date: 20111010
  Serious: Yes (Hospitalization)
  Sender: FDA-Public Use
  Company Number: 2011SP008810

PATIENT
  Age: 34 Year
  Sex: Male

DRUGS (8)
  1. SEROQUEL [Concomitant]
  2. LITHIUM [Concomitant]
  3. SAPHRIS [Suspect]
     Indication: BIPOLAR DISORDER
     Dosage: 10 MG;BID;PO; 5 MG;BID
     Route: 048
     Dates: start: 20110225, end: 20110228
  4. SAPHRIS [Suspect]
     Indication: BIPOLAR DISORDER
     Dosage: 10 MG;BID;PO; 5 MG;BID
     Route: 048
     Dates: start: 20110201, end: 20110224
  5. TRILEPTAL [Concomitant]
  6. SYNTHROID [Concomitant]
  7. DOXEPIN [Concomitant]
  8. LAMICTAL [Concomitant]

REACTIONS (8)
  - BIPOLAR DISORDER [None]
  - CONDITION AGGRAVATED [None]
  - AKATHISIA [None]
  - AGITATION [None]
  - DEPRESSION [None]
  - PARAESTHESIA [None]
  - THERAPEUTIC RESPONSE DECREASED [None]
  - MOOD SWINGS [None]
